FAERS Safety Report 10086564 (Version 2)
Quarter: 2014Q2

REPORT INFORMATION
  Report Type: Spontaneous
  Country: CA (occurrence: CA)
  Receive Date: 20140418
  Receipt Date: 20140424
  Transmission Date: 20141212
  Serious: Yes (Hospitalization)
  Sender: FDA-Public Use
  Company Number: CA-PFIZER INC-2014106911

PATIENT
  Age: 75 Year
  Sex: Female

DRUGS (2)
  1. AMIODARONE HCL [Suspect]
     Dosage: UNK
  2. ASPIRIN [Suspect]
     Dosage: 80 MG, 1X/DAY
     Route: 048

REACTIONS (3)
  - Anaemia [Unknown]
  - Hepatotoxicity [Unknown]
  - Melaena [Unknown]
